FAERS Safety Report 8572318-2 (Version None)
Quarter: 2012Q2

REPORT INFORMATION
  Report Type: 
  Country: None (occurrence: None)
  Receive Date: 20120418
  Receipt Date: 20100809
  Transmission Date: 20120825
  Serious: Yes (Other)
  Sender: FDA-Public Use
  Company Number: PHEH2010US03516

PATIENT
  Sex: Female

DRUGS (5)
  1. PREMPRO [Suspect]
  2. CYCRIN [Suspect]
  3. PREMARIN [Suspect]
  4. PROVERA [Suspect]
  5. ESTRADERM [Suspect]
     Dosage: TRANSDERMAL
     Route: 062

REACTIONS (9)
  - DEFORMITY [None]
  - BIOPSY BREAST [None]
  - EXPLORATORY OPERATION [None]
  - GENERAL PHYSICAL HEALTH DETERIORATION [None]
  - BREAST RECONSTRUCTION [None]
  - ANXIETY [None]
  - BREAST LUMP REMOVAL [None]
  - PAIN [None]
  - BREAST CANCER [None]
